FAERS Safety Report 9744848 (Version 1)
Quarter: 2013Q4

REPORT INFORMATION
  Report Type: Spontaneous
  Country: FR (occurrence: FR)
  Receive Date: 20131211
  Receipt Date: 20131211
  Transmission Date: 20140711
  Serious: Yes (Hospitalization)
  Sender: FDA-Public Use
  Company Number: FR-ROCHE-1315900

PATIENT
  Age: 67 Year
  Sex: Male

DRUGS (10)
  1. CELLCEPT [Suspect]
     Indication: PROPHYLAXIS AGAINST TRANSPLANT REJECTION
     Route: 048
  2. RAPAMUNE [Suspect]
     Indication: PROPHYLAXIS AGAINST TRANSPLANT REJECTION
     Route: 048
     Dates: start: 20120723, end: 20131018
  3. SOLUPRED (FRANCE) [Suspect]
     Indication: PROPHYLAXIS AGAINST TRANSPLANT REJECTION
     Route: 048
  4. XATRAL [Concomitant]
     Route: 065
  5. ADVAGRAF [Concomitant]
  6. AMLOR [Concomitant]
     Route: 065
  7. INEGY [Concomitant]
     Dosage: 10/20 MG
     Route: 065
  8. APROVEL [Concomitant]
     Route: 065
  9. EUPRESSYL [Concomitant]
     Route: 065
  10. TEMERIT [Concomitant]
     Route: 065

REACTIONS (1)
  - Organising pneumonia [Not Recovered/Not Resolved]
